FAERS Safety Report 23723073 (Version 1)
Quarter: 2024Q2

REPORT INFORMATION
  Report Type: Spontaneous
  Country: PH (occurrence: PH)
  Receive Date: 20240409
  Receipt Date: 20240409
  Transmission Date: 20240715
  Serious: Yes (Hospitalization)
  Sender: FDA-Public Use
  Company Number: PH-002147023-NVSC2019PH122787

PATIENT

DRUGS (1)
  1. ENTRESTO [Interacting]
     Active Substance: SACUBITRIL\VALSARTAN
     Indication: Cardiac failure
     Dosage: 0.5 DF (50 MG TABLET SPLIT IN TO TWO
     Route: 065

REACTIONS (4)
  - Pneumonia [Unknown]
  - Ejection fraction decreased [Unknown]
  - Wrong technique in product usage process [Recovering/Resolving]
  - Prescribed underdose [Unknown]
